FAERS Safety Report 5116691-6 (Version None)
Quarter: 2006Q3

REPORT INFORMATION
  Report Type: 
  Country: None (occurrence: None)
  Receive Date: 20060928
  Receipt Date: 20060424
  Transmission Date: 20061208
  Serious: Yes (Hospitalization)
  Sender: FDA-Public Use
  Company Number: US-ROCHE-445754

PATIENT
  Age: 46 Year
  Sex: Female

DRUGS (5)
  1. PEGASYS [Suspect]
     Route: 065
     Dates: start: 20051115, end: 20060415
  2. PEGASYS [Suspect]
     Route: 065
     Dates: start: 20060728, end: 20060813
  3. PEGASYS [Suspect]
     Route: 065
     Dates: start: 20060814
  4. COPEGUS [Suspect]
     Route: 048
     Dates: start: 20051115, end: 20060415
  5. COPEGUS [Suspect]
     Route: 048
     Dates: start: 20060728

REACTIONS (9)
  - ANAEMIA [None]
  - CRYING [None]
  - MUSCULOSKELETAL CHEST PAIN [None]
  - NAUSEA [None]
  - PAIN [None]
  - PLEURISY [None]
  - PNEUMONIA [None]
  - WEIGHT DECREASED [None]
  - WHITE BLOOD CELL COUNT DECREASED [None]
